FAERS Safety Report 4686906-7 (Version None)
Quarter: 2005Q2

REPORT INFORMATION
  Report Type: 
  Country: None (occurrence: None)
  Receive Date: 20050609
  Receipt Date: 20050602
  Transmission Date: 20051028
  Serious: Yes (Life-Threatening, Hospitalization)
  Sender: FDA-Public Use
  Company Number: US-MERCK-0506USA00589

PATIENT
  Age: 70 Year
  Sex: Male

DRUGS (1)
  1. VIOXX [Suspect]
     Indication: ARTHRITIS
     Route: 048
     Dates: start: 20040101, end: 20050101

REACTIONS (2)
  - ARTERIAL OCCLUSIVE DISEASE [None]
  - VASCULAR CALCIFICATION [None]
